FAERS Safety Report 7970306-8 (Version None)
Quarter: 2011Q4

REPORT INFORMATION
  Report Type: 
  Country: None (occurrence: None)
  Receive Date: 20111212
  Receipt Date: 20111130
  Transmission Date: 20120403
  Serious: Yes (Other)
  Sender: FDA-Public Use
  Company Number: US-JNJFOC-20111202488

PATIENT
  Sex: Female
  Weight: 108.86 kg

DRUGS (2)
  1. EXTRA STRENGTH TYLENOL PM [Suspect]
     Indication: PAIN
     Route: 048
     Dates: start: 20111129, end: 20111129
  2. DIABETES MEDICINE [Concomitant]
     Indication: DIABETES MELLITUS
     Route: 065

REACTIONS (3)
  - HALLUCINATION [None]
  - PRODUCT QUALITY ISSUE [None]
  - DIZZINESS [None]
